FAERS Safety Report 8842081 (Version 3)
Quarter: 2012Q4

REPORT INFORMATION
  Report Type: 
  Country: JP (occurrence: JP)
  Receive Date: 20121016
  Receipt Date: 20121112
  Transmission Date: 20130627
  Serious: Yes (Other)
  Sender: FDA-Public Use
  Company Number: JP-PFIZER INC-2012255442

PATIENT
  Age: 52 Year
  Sex: Male
  Weight: 67.8 kg

DRUGS (2)
  1. CHAMPIX [Suspect]
     Indication: SMOKING CESSATION THERAPY
     Dosage: 2 mg daily
     Route: 048
     Dates: start: 20120713, end: 20120808
  2. CHAMPIX [Suspect]
     Dosage: 0.5mg in the morning and 1.0mg in the evening, 2x/day
     Route: 048
     Dates: start: 20120809, end: 20120916

REACTIONS (5)
  - Alcohol intolerance [Recovered/Resolved]
  - Suicidal ideation [Recovered/Resolved]
  - Mental disorder [Recovered/Resolved]
  - Nausea [Recovered/Resolved]
  - Asthenia [Recovered/Resolved]
